FAERS Safety Report 8502599-2 (Version None)
Quarter: 2012Q3

REPORT INFORMATION
  Report Type: 
  Country: None (occurrence: None)
  Receive Date: 20120711
  Receipt Date: 20120705
  Transmission Date: 20120928
  Serious: Yes (Other)
  Sender: FDA-Public Use
  Company Number: US-PFIZER INC-2012162077

PATIENT
  Sex: Female
  Weight: 61 kg

DRUGS (8)
  1. TOPAMAX [Concomitant]
     Indication: EPILEPSY
  2. AMITRIPTYLINE [Concomitant]
     Dosage: UNK
  3. NEURONTIN [Suspect]
     Indication: NERVE INJURY
     Dosage: UNK, 3X/DAY
     Route: 048
     Dates: start: 20030101
  4. DILANTIN [Suspect]
     Indication: CONVULSION
     Dosage: UNK (200MG IN MORNING AND 300MG AT NIGHT CHEWABLE TABLETS IN A DAY)
     Route: 048
     Dates: start: 20110101
  5. DILANTIN [Suspect]
     Indication: EPILEPSY
  6. TOPAMAX [Concomitant]
     Indication: CONVULSION
     Dosage: UNK
  7. ESTRADIOL [Concomitant]
     Indication: OVARIAN CYST
     Dosage: UNK
  8. NEURONTIN [Suspect]
     Indication: MIGRAINE

REACTIONS (1)
  - CONVULSION [None]
